FAERS Safety Report 5055316-5 (Version None)
Quarter: 2006Q3

REPORT INFORMATION
  Report Type: 
  Country: None (occurrence: None)
  Receive Date: 20060714
  Receipt Date: 20060626
  Transmission Date: 20061208
  Serious: Yes (Other)
  Sender: FDA-Public Use
  Company Number: DE200607000248

PATIENT
  Age: 65 Year
  Sex: Female

DRUGS (2)
  1. CYMBALTA [Suspect]
     Indication: DEPRESSION
     Dosage: SEE IMAGE
     Route: 048
  2. HYPNOREX - SLOW RELEASE (LITHIUM CARBONATE) [Concomitant]

REACTIONS (4)
  - AGITATION [None]
  - DRUG INTERACTION [None]
  - SEROTONIN SYNDROME [None]
  - TREMOR [None]
